FAERS Safety Report 4828220-2 (Version None)
Quarter: 2005Q4

REPORT INFORMATION
  Report Type: 
  Country: None (occurrence: None)
  Receive Date: 20051115
  Receipt Date: 20041007
  Transmission Date: 20060501
  Serious: No
  Sender: FDA-Public Use
  Company Number: US-BRISTOL-MYERS SQUIBB COMPANY-12738258

PATIENT

DRUGS (3)
  1. SUSTIVA [Suspect]
  2. TENOFOVIR [Suspect]
  3. LAMIVUDINE [Suspect]

REACTIONS (1)
  - RASH [None]
